FAERS Safety Report 8765760 (Version 4)
Quarter: 2018Q3

REPORT INFORMATION
  Report Type: Spontaneous
  Country: US (occurrence: US)
  Receive Date: 20120903
  Receipt Date: 20180719
  Transmission Date: 20181010
  Serious: No
  Sender: FDA-Public Use
  Company Number: US-PFIZER INC-2012214481

PATIENT
  Age: 69 Year
  Sex: Female

DRUGS (1)
  1. GABAPENTIN. [Suspect]
     Active Substance: GABAPENTIN
     Dosage: 1800 MG, UNK
     Route: 048

REACTIONS (6)
  - Back pain [Unknown]
  - Pain [Unknown]
  - Fibromyalgia [Unknown]
  - Pruritus [Unknown]
  - Drug ineffective [Unknown]
  - Influenza like illness [Unknown]
